FAERS Safety Report 19462979 (Version 1)
Quarter: 2021Q2

REPORT INFORMATION
  Report Type: Spontaneous
  Country: BR (occurrence: BR)
  Receive Date: 20210625
  Receipt Date: 20210625
  Transmission Date: 20210717
  Serious: Yes (Other)
  Sender: FDA-Public Use
  Company Number: BR-BIOMARINAP-BR-2021-137236

PATIENT
  Age: 12 Year
  Sex: Male

DRUGS (1)
  1. NAGLAZYME [Suspect]
     Active Substance: GALSULFASE
     Indication: MUCOPOLYSACCHARIDOSIS VI
     Dosage: UNK, QW
     Route: 042

REACTIONS (9)
  - Mobility decreased [Unknown]
  - Upper airway obstruction [Unknown]
  - Cardiac disorder [Unknown]
  - Hand deformity [Unknown]
  - Lung disorder [Unknown]
  - Upper respiratory tract infection [Unknown]
  - Carpal tunnel syndrome [Unknown]
  - Spinal deformity [Unknown]
  - Bone development abnormal [Unknown]
